FAERS Safety Report 7803976-5 (Version None)
Quarter: 2011Q4

REPORT INFORMATION
  Report Type: 
  Country: None (occurrence: None)
  Receive Date: 20111010
  Receipt Date: 20111005
  Transmission Date: 20120403
  Serious: Yes (Death, Hospitalization)
  Sender: FDA-Public Use
  Company Number: US-JNJFOC-20111002614

PATIENT
  Sex: Female
  Weight: 73.03 kg

DRUGS (4)
  1. DOXORUBICIN HCL [Suspect]
     Route: 042
  2. DOXORUBICIN HCL [Suspect]
     Indication: BREAST CANCER
     Route: 042
     Dates: start: 20101202
  3. ABRAXANE [Suspect]
     Indication: BREAST CANCER
     Route: 065
     Dates: start: 20110907
  4. DOXORUBICIN HCL [Suspect]
     Route: 042
     Dates: start: 20110714, end: 20110714

REACTIONS (2)
  - DRUG DOSE OMISSION [None]
  - CEREBRAL HAEMORRHAGE [None]
